FAERS Safety Report 8600390-X (Version None)
Quarter: 2012Q3

REPORT INFORMATION
  Report Type: 
  Country: None (occurrence: None)
  Receive Date: 20120817
  Receipt Date: 20120813
  Transmission Date: 20120928
  Serious: No
  Sender: FDA-Public Use
  Company Number: US-PFIZER INC-2012198294

PATIENT
  Age: 51 Year
  Sex: Female
  Weight: 92.063 kg

DRUGS (12)
  1. VITAMIN D [Concomitant]
     Dosage: 2000U
  2. LOPERAMIDE HYDROCHLORIDE [Concomitant]
     Indication: DIARRHOEA
  3. GABAPENTIN [Concomitant]
     Dosage: 300 MG, AS NEEDED
  4. FOSAMAX [Concomitant]
     Dosage: UNK, WEEKLY
  5. PERCOCET [Concomitant]
     Dosage: 5/500
  6. ACETYLSALICYLIC ACID [Concomitant]
     Dosage: 81 MG, UNK
  7. TRICOR [Concomitant]
     Dosage: 134 MG, UNK
  8. ASCORBIC ACID [Concomitant]
     Dosage: 2000U
  9. TOPROL-XL [Concomitant]
     Dosage: 25 MG, UNK
  10. SUTENT [Suspect]
     Indication: METASTATIC RENAL CELL CARCINOMA
     Dosage: 50 MG, CYCLIC (42 DAY CYCLE)
     Dates: start: 20120730
  11. LEXAPRO [Concomitant]
  12. LOSARTAN [Concomitant]
     Dosage: 100 MG, UNK

REACTIONS (6)
  - WEIGHT DECREASED [None]
  - HEADACHE [None]
  - NAUSEA [None]
  - DECREASED APPETITE [None]
  - CONSTIPATION [None]
  - STOMATITIS [None]
